FAERS Safety Report 7673386-2 (Version None)
Quarter: 2011Q3

REPORT INFORMATION
  Report Type: 
  Country: None (occurrence: None)
  Receive Date: 20110810
  Receipt Date: 20110801
  Transmission Date: 20111222
  Serious: Yes (Hospitalization, Other)
  Sender: FDA-Public Use
  Company Number: US-JNJFOC-20101104530

PATIENT
  Sex: Female
  Weight: 36.5 kg

DRUGS (9)
  1. MESALAMINE [Concomitant]
     Route: 048
  2. MERCAPTOPURINE [Concomitant]
  3. PREVACID [Concomitant]
  4. BUDESONIDE [Concomitant]
  5. INFLIXIMAB, RECOMBINANT [Suspect]
     Indication: CROHN'S DISEASE
     Route: 042
     Dates: start: 20100922
  6. INFLIXIMAB, RECOMBINANT [Suspect]
     Dosage: TOTAL 2 DOSES
     Route: 042
     Dates: start: 20101008
  7. TYLENOL-500 [Concomitant]
  8. METRONIDAZOLE [Concomitant]
  9. ZOFRAN [Concomitant]

REACTIONS (1)
  - CROHN'S DISEASE [None]
